FAERS Safety Report 9031512 (Version 1)
Quarter: 2013Q1

REPORT INFORMATION
  Report Type: Spontaneous
  Country: FI (occurrence: FI)
  Receive Date: 20130124
  Receipt Date: 20130124
  Transmission Date: 20140127
  Serious: Yes (Death)
  Sender: FDA-Public Use
  Company Number: FI-ROCHE-1182910

PATIENT
  Sex: Male

DRUGS (1)
  1. MABTHERA [Suspect]
     Indication: RHEUMATOID ARTHRITIS
     Route: 042
     Dates: start: 20110302, end: 20110323

REACTIONS (3)
  - Upper respiratory tract infection [Fatal]
  - Cardiac failure [Fatal]
  - Myocardial infarction [Fatal]
